FAERS Safety Report 7920526-3 (Version None)
Quarter: 2011Q4

REPORT INFORMATION
  Report Type: 
  Country: None (occurrence: None)
  Receive Date: 20111117
  Receipt Date: 20111110
  Transmission Date: 20120403
  Serious: Yes (Other)
  Sender: FDA-Public Use
  Company Number: PHEH2011US00450

PATIENT
  Sex: Male

DRUGS (6)
  1. ZOMETA [Suspect]
     Dosage: UNK
  2. FOSAMAX [Suspect]
     Dosage: UNK
  3. IMODIUM [Concomitant]
     Dosage: 4 MG, BID
  4. CELEBREX [Concomitant]
     Dosage: 200 MG, BID
  5. LYRICA [Concomitant]
     Dosage: 300 MG, BID
  6. AVODART [Concomitant]

REACTIONS (16)
  - PATELLA FRACTURE [None]
  - HIATUS HERNIA [None]
  - QUALITY OF LIFE DECREASED [None]
  - FEAR [None]
  - OSTEOPENIA [None]
  - DECREASED INTEREST [None]
  - OSTEONECROSIS OF JAW [None]
  - INJURY [None]
  - ANXIETY [None]
  - DIVERTICULUM [None]
  - LYMPHADENOPATHY [None]
  - PAIN [None]
  - UPPER LIMB FRACTURE [None]
  - OSTEOPOROSIS [None]
  - OSTEOARTHRITIS [None]
  - ARTERIOSCLEROSIS [None]
